FAERS Safety Report 5031819-4 (Version None)
Quarter: 2006Q2

REPORT INFORMATION
  Report Type: 
  Country: None (occurrence: None)
  Receive Date: 20060616
  Receipt Date: 20060608
  Transmission Date: 20061013
  Serious: Yes (Hospitalization)
  Sender: FDA-Public Use
  Company Number: 2006-05-1130

PATIENT
  Age: 67 Year
  Sex: Female
  Weight: 56 kg

DRUGS (7)
  1. PEG-INTRON [Suspect]
     Indication: HEPATITIS C
     Dosage: 80 MCG QW SUBCUTANEOUS
     Route: 058
     Dates: start: 20060410, end: 20060417
  2. REBETOL [Suspect]
     Indication: HEPATITIS C
     Dosage: 600 MG ORAL
     Route: 048
     Dates: start: 20060410, end: 20060417
  3. CILNIDIPINE TABLETS [Concomitant]
  4. BLOPRESS (CANDESARTAN CILEXETIL) TABLETS [Concomitant]
  5. AMARYL [Concomitant]
  6. NAUZELIN TABLETS [Concomitant]
  7. URSO TABLETS [Concomitant]

REACTIONS (7)
  - ATELECTASIS [None]
  - CHEST PAIN [None]
  - HAEMATEMESIS [None]
  - HAEMOPTYSIS [None]
  - HEART RATE INCREASED [None]
  - INTERSTITIAL LUNG DISEASE [None]
  - PLEURAL EFFUSION [None]
